FAERS Safety Report 10450856 (Version 3)
Quarter: 2014Q4

REPORT INFORMATION
  Report Type: Spontaneous
  Country: US (occurrence: US)
  Receive Date: 20140912
  Receipt Date: 20141113
  Transmission Date: 20150528
  Serious: Yes (Hospitalization, Congenital Anomaly, Other)
  Sender: FDA-Public Use
  Company Number: US-PFIZER INC-2014212344

PATIENT
  Sex: Male
  Weight: 2.64 kg

DRUGS (4)
  1. NICOTROL [Suspect]
     Active Substance: NICOTINE
     Indication: SMOKING CESSATION THERAPY
     Dosage: 10 MG, 4-12 CARTRIDGES/DAY
     Route: 064
     Dates: start: 20140114, end: 201401
  2. LABETALOL [Concomitant]
     Active Substance: LABETALOL\LABETALOL HYDROCHLORIDE
     Indication: HYPERTENSION
     Dosage: 50 MG, 2X/DAY
     Route: 064
  3. NICOTROL [Suspect]
     Active Substance: NICOTINE
     Dosage: 10 MG, 4-12 CARTRIDGES/DAY
     Route: 064
     Dates: start: 201401, end: 20140121
  4. PRENATAL VITAMINS [Concomitant]
     Active Substance: VITAMINS
     Indication: ROUTINE HEALTH MAINTENANCE
     Dosage: 1 DF, 1X/DAY
     Route: 064
     Dates: start: 2013

REACTIONS (3)
  - Foetal cardiac disorder [Recovered/Resolved with Sequelae]
  - Low birth weight baby [Unknown]
  - Maternal exposure during pregnancy [Unknown]

NARRATIVE: CASE EVENT DATE: 20140514
